FAERS Safety Report 7054098-5 (Version None)
Quarter: 2010Q4

REPORT INFORMATION
  Report Type: 
  Country: None (occurrence: None)
  Receive Date: 20101020
  Receipt Date: 20101013
  Transmission Date: 20110411
  Serious: Yes (Hospitalization)
  Sender: FDA-Public Use
  Company Number: PHHO2010US15645

PATIENT
  Sex: Male
  Weight: 63.4 kg

DRUGS (15)
  1. AFINITOR [Suspect]
     Indication: THYROID CANCER
     Dosage: 10 MG, QD
     Route: 048
     Dates: start: 20100416, end: 20101006
  2. LASIX [Concomitant]
  3. SPIRIVA [Concomitant]
  4. METOPROLOL [Concomitant]
  5. LISINOPRIL [Concomitant]
  6. LEVOXYL [Concomitant]
  7. FUROSEMIDE [Concomitant]
  8. PRAVASTATIN [Concomitant]
  9. CALCIUM [Concomitant]
  10. ANTIACID [Concomitant]
  11. ASPIRIN [Concomitant]
  12. ACETAMINOPHEN [Concomitant]
  13. NAPROXEN [Concomitant]
  14. CETRIZINE [Concomitant]
  15. ALBUTEROL [Concomitant]

REACTIONS (4)
  - ASPIRATION PLEURAL CAVITY [None]
  - DYSPNOEA [None]
  - EMPHYSEMA [None]
  - PLEURAL EFFUSION [None]
